FAERS Safety Report 17509199 (Version 1)
Quarter: 2020Q1

REPORT INFORMATION
  Report Type: Spontaneous
  Country: GB (occurrence: GB)
  Receive Date: 20200306
  Receipt Date: 20200306
  Transmission Date: 20200409
  Serious: Yes (Other)
  Sender: FDA-Public Use
  Company Number: GB-NOVOPROD-715471

PATIENT
  Age: 60 Year
  Sex: Male
  Weight: 122 kg

DRUGS (1)
  1. OZEMPIC [Suspect]
     Active Substance: SEMAGLUTIDE
     Indication: PRODUCT USED FOR UNKNOWN INDICATION
     Dosage: UNK
     Route: 058
     Dates: start: 20200214, end: 20200217

REACTIONS (5)
  - Pruritus [Unknown]
  - Abdominal pain [Recovering/Resolving]
  - Blood glucose increased [Recovering/Resolving]
  - Rash [Recovering/Resolving]
  - Heart rate increased [Recovering/Resolving]

NARRATIVE: CASE EVENT DATE: 20200214
